FAERS Safety Report 10669972 (Version 3)
Quarter: 2015Q1

REPORT INFORMATION
  Report Type: Spontaneous
  Country: CA (occurrence: CA)
  Receive Date: 20141223
  Receipt Date: 20150206
  Transmission Date: 20150720
  Serious: Yes (Hospitalization)
  Sender: FDA-Public Use
  Company Number: CA-ROCHE-1380390

PATIENT
  Age: 51 Year
  Sex: Female

DRUGS (24)
  1. HERCEPTIN [Suspect]
     Active Substance: TRASTUZUMAB
     Indication: BREAST CANCER METASTATIC
     Dosage: POWDER FOR SOLUTION INTRAVENOUS
     Route: 042
  2. AREDIA [Concomitant]
     Active Substance: PAMIDRONATE DISODIUM
     Route: 065
  3. TAXOTERE [Suspect]
     Active Substance: DOCETAXEL
     Route: 042
  4. COLACE [Concomitant]
     Active Substance: DOCUSATE SODIUM
     Route: 065
  5. DEXAMETHASONE. [Concomitant]
     Active Substance: DEXAMETHASONE
  6. M-ESLON [Concomitant]
     Active Substance: MORPHINE SULFATE
  7. MOMETASONE FUROATE. [Concomitant]
     Active Substance: MOMETASONE FUROATE
  8. ZYLOPRIM [Concomitant]
     Active Substance: ALLOPURINOL
  9. PREGABALIN. [Concomitant]
     Active Substance: PREGABALIN
  10. ATIVAN [Concomitant]
     Active Substance: LORAZEPAM
     Route: 065
  11. PANTOPRAZOLE [Concomitant]
     Active Substance: PANTOPRAZOLE SODIUM
  12. TAXOTERE [Suspect]
     Active Substance: DOCETAXEL
     Indication: BREAST CANCER METASTATIC
     Route: 042
  13. CALCITE D [Concomitant]
     Active Substance: CALCIUM CARBONATE
  14. MS CONTIN [Concomitant]
     Active Substance: MORPHINE SULFATE
     Route: 065
  15. NOVO-GESIC (CANADA) [Concomitant]
  16. PROCHLORPERAZINE. [Concomitant]
     Active Substance: PROCHLORPERAZINE
     Route: 065
  17. STATEX (CANADA) [Concomitant]
     Route: 065
  18. MONTELUKAST [Concomitant]
     Active Substance: MONTELUKAST SODIUM
  19. OXAZEPAM. [Concomitant]
     Active Substance: OXAZEPAM
  20. SENOKOT [Concomitant]
     Active Substance: SENNOSIDES
  21. PERJETA [Suspect]
     Active Substance: PERTUZUMAB
     Indication: BREAST CANCER METASTATIC
     Dosage: 14ML VIAL - CONCENTRATE SOLUTION, SOLUTION INTRAVENOUS
     Route: 042
  22. PERJETA [Suspect]
     Active Substance: PERTUZUMAB
     Dosage: 14ML VIAL - CONCENTRATE SOLUTION, SOLUTION INTRAVENOUS
     Route: 042
  23. ERGOCALCIFEROL. [Concomitant]
     Active Substance: ERGOCALCIFEROL
  24. VENTOLIN [Concomitant]
     Active Substance: ALBUTEROL SULFATE

REACTIONS (21)
  - Dyspnoea [Unknown]
  - Hot flush [Unknown]
  - Metastases to central nervous system [Unknown]
  - Neutropenia [Unknown]
  - Anaphylactic reaction [Unknown]
  - Neurogenic shock [Unknown]
  - Nausea [Unknown]
  - Pruritus [Unknown]
  - Dyspepsia [Unknown]
  - Hypotension [Unknown]
  - Arthralgia [Unknown]
  - Dizziness [Unknown]
  - Hyperhidrosis [Unknown]
  - Muscle rigidity [Unknown]
  - Fatigue [Unknown]
  - Hypoaesthesia [Unknown]
  - Lacrimation increased [Unknown]
  - Myalgia [Unknown]
  - Malaise [Unknown]
  - Vomiting [Unknown]
  - Back pain [Unknown]
